FAERS Safety Report 16401593 (Version 2)
Quarter: 2019Q2

REPORT INFORMATION
  Report Type: Spontaneous
  Country: US (occurrence: US)
  Receive Date: 20190606
  Receipt Date: 20190610
  Transmission Date: 20190711
  Serious: Yes (Hospitalization, Other)
  Sender: FDA-Public Use
  Company Number: US-CELGENEUS-USA-20190601330

PATIENT
  Age: 68 Year
  Sex: Female
  Weight: 73 kg

DRUGS (13)
  1. REVLIMID [Suspect]
     Active Substance: LENALIDOMIDE
     Indication: MYELODYSPLASTIC SYNDROME
     Dosage: 10 MILLIGRAM
     Route: 048
     Dates: start: 201404
  2. REVLIMID [Suspect]
     Active Substance: LENALIDOMIDE
     Dosage: 5 MILLIGRAM
     Route: 048
     Dates: start: 201407
  3. POTASSIUM [Concomitant]
     Active Substance: POTASSIUM
     Indication: PRODUCT USED FOR UNKNOWN INDICATION
     Route: 065
  4. AZACITIDINE. [Suspect]
     Active Substance: AZACITIDINE
     Dosage: 141 MG 2 SHOTS
     Route: 058
     Dates: start: 20190523
  5. BYSTOLIC [Concomitant]
     Active Substance: NEBIVOLOL HYDROCHLORIDE
     Indication: PRODUCT USED FOR UNKNOWN INDICATION
     Route: 065
  6. PLATELETS [Concomitant]
     Active Substance: HUMAN PLATELET, ALLOGENIC
     Indication: PRODUCT USED FOR UNKNOWN INDICATION
     Dosage: 2 UNITS
     Route: 065
  7. CALCIUM [Concomitant]
     Active Substance: CALCIUM
     Indication: PRODUCT USED FOR UNKNOWN INDICATION
     Route: 065
  8. AMLODIPINE [Concomitant]
     Active Substance: AMLODIPINE BESYLATE
     Indication: PRODUCT USED FOR UNKNOWN INDICATION
     Route: 065
  9. VITAMINE D [Concomitant]
     Active Substance: CHOLECALCIFEROL
     Indication: PRODUCT USED FOR UNKNOWN INDICATION
     Route: 065
  10. AZACITIDINE. [Suspect]
     Active Substance: AZACITIDINE
     Indication: MYELODYSPLASTIC SYNDROME
     Route: 065
     Dates: start: 201902
  11. PERCOCET [Concomitant]
     Active Substance: ACETAMINOPHEN\OXYCODONE HYDROCHLORIDE
     Indication: PRODUCT USED FOR UNKNOWN INDICATION
     Route: 065
  12. LISINOPRIL. [Concomitant]
     Active Substance: LISINOPRIL
     Indication: PRODUCT USED FOR UNKNOWN INDICATION
     Route: 065
  13. BLOOD [Concomitant]
     Active Substance: WHOLE BLOOD
     Indication: PRODUCT USED FOR UNKNOWN INDICATION
     Dosage: 1 UNITS
     Route: 065

REACTIONS (7)
  - Haematemesis [Not Recovered/Not Resolved]
  - Platelet count decreased [Not Recovered/Not Resolved]
  - Splenic infarction [Not Recovered/Not Resolved]
  - Therapeutic product effect decreased [Unknown]
  - Pulmonary oedema [Not Recovered/Not Resolved]
  - Splenic rupture [Not Recovered/Not Resolved]
  - Abdominal pain upper [Not Recovered/Not Resolved]

NARRATIVE: CASE EVENT DATE: 20190523
